FAERS Safety Report 4282630-3 (Version None)
Quarter: 2004Q1

REPORT INFORMATION
  Report Type: 
  Country: None (occurrence: None)
  Receive Date: 20040130
  Receipt Date: 20021227
  Transmission Date: 20041129
  Serious: No
  Sender: FDA-Public Use
  Company Number: US-BRISTOL-MYERS SQUIBB COMPANY-12147120

PATIENT
  Age: 40 Year
  Sex: Female
  Weight: 54 kg

DRUGS (2)
  1. SERZONE [Suspect]
     Indication: DEPRESSION
     Dosage: STOPPED SERZONE ON 24-DEC-02, TOOK ANOTHER TABLET ON 27-DEC-02.
     Route: 048
     Dates: start: 19950101
  2. SERZONE [Suspect]
     Indication: POST-TRAUMATIC STRESS DISORDER
     Dosage: STOPPED SERZONE ON 24-DEC-02, TOOK ANOTHER TABLET ON 27-DEC-02.
     Route: 048
     Dates: start: 19950101

REACTIONS (7)
  - ABNORMAL DREAMS [None]
  - CONFUSIONAL STATE [None]
  - DIZZINESS [None]
  - FEELING HOT AND COLD [None]
  - NAUSEA [None]
  - NERVOUSNESS [None]
  - PANIC ATTACK [None]
